FAERS Safety Report 8958492 (Version 1)
Quarter: 2012Q4

REPORT INFORMATION
  Report Type: Spontaneous
  Country: US (occurrence: None)
  Receive Date: 20121205
  Receipt Date: 20121205
  Transmission Date: 20130627
  Serious: Yes (Other)
  Sender: FDA-Public Use
  Company Number: None

PATIENT
  Age: 77 Year
  Sex: Female
  Weight: 68.95 kg

DRUGS (1)
  1. HYDRALAZINE [Suspect]
     Indication: BLOOD PRESSURE HIGH
     Dosage: 25 mg  3 times daily   EYES
11/2/3/4/5/6  2012
     Dates: start: 20121102, end: 20121106

REACTIONS (2)
  - Eye infection [None]
  - Visual impairment [None]
